FAERS Safety Report 9400862 (Version 1)
Quarter: 2013Q3

REPORT INFORMATION
  Report Type: Spontaneous
  Country: US (occurrence: None)
  Receive Date: 20130712
  Receipt Date: 20130712
  Transmission Date: 20140515
  Serious: Yes (Life-Threatening, Other)
  Sender: FDA-Public Use
  Company Number: None

PATIENT
  Age: 76 None
  Sex: Female
  Weight: 57.15 kg

DRUGS (1)
  1. RECLAST [Suspect]
     Indication: OSTEOPOROSIS
     Dosage: 4 ANNUAL INJECTIONS FROM 2009 TO 20012?JULY 2009, 10,11,12
     Dates: start: 20090710

REACTIONS (3)
  - Bone fragmentation [None]
  - Pain [None]
  - Stress [None]
